FAERS Safety Report 19231936 (Version 1)
Quarter: 2021Q2

REPORT INFORMATION
  Report Type: Spontaneous
  Country: AU (occurrence: AU)
  Receive Date: 20210507
  Receipt Date: 20210507
  Transmission Date: 20210717
  Serious: Yes (Other)
  Sender: FDA-Public Use
  Company Number: AU-PFIZER INC-2021499126

PATIENT
  Sex: Male

DRUGS (2)
  1. ELEVA [Suspect]
     Active Substance: SERTRALINE HYDROCHLORIDE
     Dosage: UNK
  2. ZOLOFT [Suspect]
     Active Substance: SERTRALINE HYDROCHLORIDE
     Dosage: UNK

REACTIONS (12)
  - Hallucination, visual [Unknown]
  - Diarrhoea [Unknown]
  - Headache [Unknown]
  - Vision blurred [Unknown]
  - Muscle twitching [Unknown]
  - Angina pectoris [Unknown]
  - Pain in extremity [Unknown]
  - Insomnia [Unknown]
  - Abdominal pain upper [Unknown]
  - Tremor [Unknown]
  - Abnormal dreams [Unknown]
  - Iris disorder [Unknown]
